FAERS Safety Report 9300299 (Version 2)
Quarter: 2013Q1

REPORT INFORMATION
  Report Type: Spontaneous
  Country: DK (occurrence: None)
  Receive Date: 20121102
  Receipt Date: 20130325
  Transmission Date: 20140127
  Serious: Yes (Life-Threatening, Hospitalization, Disabling)
  Sender: FDA-Public Use
  Company Number: 2012DEPDK00136

PATIENT
  Age: 21 Year
  Sex: Male
  Weight: 120 kg

DRUGS (4)
  1. DEPOCYTE (CYTARABINE) LIPOSOME INJECTABLE SUSPENSION, MG [Suspect]
     Indication: ACUTE LYMPHOCYTIC LEUKAEMIA
     Dosage: 50MG/5/ML
     Route: 037
     Dates: start: 20090225, end: 20090617
  2. DEPOCYTE (CYTARABINE) LIPOSOME INJECTABLE SUSPENSION, MG [Suspect]
     Indication: CHROMOSOME ANALYSIS ABNORMAL
     Dosage: 50MG/5/ML
     Route: 037
     Dates: start: 20090225, end: 20090617
  3. TASIGNA (NILOTINIB HYDROCHLORIDE) [Concomitant]
  4. METHOTREXATE (METHOTREXATE) [Concomitant]

REACTIONS (12)
  - Brain oedema [None]
  - Arachnoiditis [None]
  - Headache [None]
  - Spinal column stenosis [None]
  - Intracranial pressure increased [None]
  - Cognitive disorder [None]
  - Disturbance in attention [None]
  - Memory impairment [None]
  - Learning disorder [None]
  - Hydrocephalus [None]
  - Blast cell crisis [None]
  - Attention deficit/hyperactivity disorder [None]
